FAERS Safety Report 10214308 (Version 1)
Quarter: 2014Q2

REPORT INFORMATION
  Report Type: Spontaneous
  Country: US (occurrence: None)
  Receive Date: 20140602
  Receipt Date: 20140602
  Transmission Date: 20141212
  Serious: Yes (Hospitalization)
  Sender: FDA-Public Use
  Company Number: None

PATIENT
  Age: 52 Year
  Sex: Male
  Weight: 104 kg

DRUGS (10)
  1. COPAXONE [Suspect]
     Indication: MULTIPLE SCLEROSIS
     Route: 058
     Dates: end: 20140212
  2. CALCIUM CARBONATE [Concomitant]
  3. CHOLECALCIFEROL [Concomitant]
  4. ERGOCALCIFEROL [Concomitant]
  5. LACTINEX [Concomitant]
  6. LISINOPRIL [Concomitant]
  7. OMEGA-3 [Concomitant]
  8. CRESTOR [Concomitant]
  9. TIZANIDINE [Concomitant]
  10. AMBIEN [Concomitant]

REACTIONS (2)
  - Dyspnoea [None]
  - Syncope [None]
